FAERS Safety Report 9221005 (Version 3)
Quarter: 2013Q3

REPORT INFORMATION
  Report Type: Report from Study
  Country: GB (occurrence: GB)
  Receive Date: 20130409
  Receipt Date: 20130708
  Transmission Date: 20140515
  Serious: Yes (Hospitalization)
  Sender: FDA-Public Use
  Company Number: GB-ROCHE-1211635

PATIENT
  Age: 82 Year
  Sex: Female
  Weight: 73 kg

DRUGS (9)
  1. TOCILIZUMAB [Suspect]
     Indication: SERONEGATIVE ARTHRITIS
     Dosage: LAST DOSE PRIOR TO SAE: 27/SEP/2012
     Route: 065
     Dates: start: 20120830, end: 20120927
  2. PREDNISOLONE [Concomitant]
     Route: 048
  3. ADCAL - D3 [Concomitant]
     Route: 050
  4. OMEPRAZOLE [Concomitant]
     Route: 048
  5. LEFLUNOMIDE [Concomitant]
     Route: 048
  6. ALENDRONATE [Concomitant]
     Route: 048
  7. CETIRIZINE [Concomitant]
     Route: 048
  8. CO-CODAMOL [Concomitant]
     Dosage: 30/500 TABLETS
     Route: 048
  9. OILATUM EMOLLIENT [Concomitant]
     Route: 050

REACTIONS (2)
  - Diverticulitis [Recovered/Resolved]
  - Diverticulum [Unknown]
